FAERS Safety Report 4893019-8 (Version None)
Quarter: 2005Q4

REPORT INFORMATION
  Report Type: 
  Country: None (occurrence: None)
  Receive Date: 20051220
  Receipt Date: 20051003
  Transmission Date: 20060501
  Serious: Yes (Other)
  Sender: FDA-Public Use
  Company Number: 419656

PATIENT
  Sex: Female
  Weight: 74.8 kg

DRUGS (1)
  1. BONIVA [Suspect]

REACTIONS (1)
  - ASTHENIA [None]
